FAERS Safety Report 21403163 (Version 1)
Quarter: 2022Q3

REPORT INFORMATION
  Report Type: Spontaneous
  Country: PE (occurrence: None)
  Receive Date: 20220930
  Receipt Date: 20220930
  Transmission Date: 20221027
  Serious: Yes (Disabling)
  Sender: FDA-Public Use
  Company Number: None

PATIENT
  Age: 25 Year
  Sex: Male
  Weight: 85 kg

DRUGS (2)
  1. CIPROFLOXACIN [Suspect]
     Active Substance: CIPROFLOXACIN
     Indication: Prophylaxis
     Dosage: OTHER QUANTITY : 9 CAPSULE(S);?FREQUENCY : EVERY 12 HOURS;?
     Route: 048
     Dates: start: 20210801, end: 20210805
  2. CIPROFLOXACIN [Suspect]
     Active Substance: CIPROFLOXACIN
     Indication: Postoperative care

REACTIONS (22)
  - Feeling hot [None]
  - Burning sensation [None]
  - Muscle twitching [None]
  - Muscle twitching [None]
  - Condition aggravated [None]
  - Insomnia [None]
  - Hyperhidrosis [None]
  - Joint noise [None]
  - Tendon pain [None]
  - Hypoaesthesia [None]
  - Hypoaesthesia [None]
  - Peripheral coldness [None]
  - Palpitations [None]
  - Sensation of foreign body [None]
  - Vitreous floaters [None]
  - Vein disorder [None]
  - Body fat disorder [None]
  - Antinuclear antibody positive [None]
  - Arthropathy [None]
  - Erythema [None]
  - Nail disorder [None]
  - Onychoclasis [None]

NARRATIVE: CASE EVENT DATE: 20210801
